FAERS Safety Report 7517529-X (Version None)
Quarter: 2011Q2

REPORT INFORMATION
  Report Type: 
  Country: None (occurrence: None)
  Receive Date: 20110601
  Receipt Date: 20110518
  Transmission Date: 20111010
  Serious: Yes (Hospitalization, Other)
  Sender: FDA-Public Use
  Company Number: US-ELI_LILLY_AND_COMPANY-US201105000830

PATIENT
  Sex: Female

DRUGS (13)
  1. LIPITOR [Concomitant]
     Dosage: 10 MG, QD
     Route: 065
  2. METOPROLOL TARTRATE [Concomitant]
     Dosage: 50 MG, QD
     Route: 065
  3. FORTEO [Suspect]
     Indication: OSTEOPOROSIS
     Dosage: UNK, UNKNOWN
     Dates: start: 20110427
  4. CALCIUM WITH VITAMIN D [Concomitant]
     Dosage: UNK UNK, BID
     Route: 065
  5. RAMIPRIL [Concomitant]
     Dosage: 5 MG, QD
     Route: 065
  6. PLAVIX [Concomitant]
     Dosage: 75 MG, QD
     Route: 065
  7. ASPIRIN [Concomitant]
     Dosage: 81 MG, QD
     Route: 065
  8. RESTASIS [Concomitant]
     Indication: EYE DISORDER
     Dosage: UNK, UNKNOWN
     Route: 065
  9. BIOTIN [Concomitant]
     Dosage: 1000 MG, QD
     Route: 065
  10. FORTEO [Suspect]
     Dosage: UNK
     Dates: start: 20010501
  11. FERROUS SULFATE TAB [Concomitant]
     Dosage: 27 MG, QD
     Route: 065
  12. CENTRUM SILVER [Concomitant]
     Dosage: UNK, QD
     Route: 065
  13. LOVAZA [Concomitant]
     Dosage: 1200 MG, QD
     Route: 065

REACTIONS (6)
  - HYPOAESTHESIA [None]
  - TOOTH FRACTURE [None]
  - MYOCARDIAL INFARCTION [None]
  - BACK PAIN [None]
  - CONFUSIONAL STATE [None]
  - MEMORY IMPAIRMENT [None]
